FAERS Safety Report 5174324-7 (Version None)
Quarter: 2006Q4

REPORT INFORMATION
  Report Type: 
  Country: None (occurrence: None)
  Receive Date: 20061214
  Receipt Date: 20060509
  Transmission Date: 20070319
  Serious: Yes (Hospitalization)
  Sender: FDA-Public Use
  Company Number: US-ELI_LILLY_AND_COMPANY-US200609002320

PATIENT
  Age: 37 Year
  Sex: Male
  Weight: 104.31 kg

DRUGS (3)
  1. RISPERIDONE [Concomitant]
     Dates: start: 19990101
  2. DEPAKOTE [Concomitant]
     Dates: start: 19990101
  3. ZYPREXA [Suspect]
     Indication: BIPOLAR DISORDER
     Dates: start: 19990101, end: 20010101

REACTIONS (3)
  - MYOCARDIAL INFARCTION [None]
  - OBESITY [None]
  - WEIGHT INCREASED [None]
